FAERS Safety Report 15670829 (Version 10)
Quarter: 2021Q3

REPORT INFORMATION
  Report Type: Spontaneous
  Country: JP (occurrence: JP)
  Receive Date: 20181129
  Receipt Date: 20210928
  Transmission Date: 20211014
  Serious: Yes (Death, Hospitalization, Other)
  Sender: FDA-Public Use
  Company Number: JP-BRISTOL-MYERS SQUIBB COMPANY-BMS-2018-110377

PATIENT
  Age: 82 Year
  Sex: Male

DRUGS (2)
  1. OPDIVO [Suspect]
     Active Substance: NIVOLUMAB
     Indication: METASTATIC RENAL CELL CARCINOMA
     Dosage: 250 MG, Q3WK
     Route: 041
     Dates: start: 20180921, end: 20181122
  2. YERVOY [Suspect]
     Active Substance: IPILIMUMAB
     Indication: METASTATIC RENAL CELL CARCINOMA
     Dosage: 1 MG/KG, Q3WK
     Route: 041
     Dates: start: 20180921, end: 20181122

REACTIONS (7)
  - Myositis [Recovered/Resolved]
  - Renal tubular dysfunction [Recovering/Resolving]
  - Malignant neoplasm progression [Fatal]
  - Fall [Unknown]
  - Rhabdomyolysis [Recovering/Resolving]
  - Interstitial lung disease [Recovered/Resolved]
  - Arterial haemorrhage [Recovered/Resolved]

NARRATIVE: CASE EVENT DATE: 201811
